FAERS Safety Report 8048925-2 (Version None)
Quarter: 2012Q1

REPORT INFORMATION
  Report Type: 
  Country: None (occurrence: None)
  Receive Date: 20120110
  Receipt Date: 20111227
  Transmission Date: 20120608
  Serious: Yes (Life-Threatening, Hospitalization, Other)
  Sender: FDA-Public Use
  Company Number: 2011MA018214

PATIENT
  Age: 27 Year
  Sex: Male

DRUGS (1)
  1. VENLAFAXINE HYDROCHLORIDE [Suspect]
     Indication: INTENTIONAL OVERDOSE
     Dosage: 6.3 GM;X1;PO
     Route: 048

REACTIONS (12)
  - CONVULSION [None]
  - RESPIRATORY FAILURE [None]
  - BLOOD PRESSURE INCREASED [None]
  - EOSINOPHILIC PNEUMONIA ACUTE [None]
  - LUNG INFILTRATION [None]
  - SUICIDAL IDEATION [None]
  - BODY TEMPERATURE DECREASED [None]
  - AGITATION [None]
  - LUNG CONSOLIDATION [None]
  - OVERDOSE [None]
  - TACHYCARDIA [None]
  - SHOCK [None]
